FAERS Safety Report 10077364 (Version 2)
Quarter: 2014Q2

REPORT INFORMATION
  Report Type: Spontaneous
  Country: US (occurrence: US)
  Receive Date: 20140414
  Receipt Date: 20140414
  Transmission Date: 20141212
  Serious: No
  Sender: FDA-Public Use
  Company Number: US-BANPHARM-20131414

PATIENT
  Age: 71 Year
  Sex: Female
  Weight: 64.41 kg

DRUGS (4)
  1. ALEVE LIQUID GELS 220 MG [Suspect]
     Indication: ARTHRITIS
     Dosage: 1 DF, PRN,
     Route: 048
     Dates: end: 20130608
  2. ZOCOR [Concomitant]
  3. EVISTA [Concomitant]
  4. VITAMIN D [Concomitant]

REACTIONS (5)
  - Feeling hot [Recovered/Resolved]
  - Eye pruritus [Not Recovered/Not Resolved]
  - Rash [Recovered/Resolved]
  - Erythema [Recovered/Resolved]
  - Pruritus [Recovered/Resolved]
